FAERS Safety Report 4795310-2 (Version None)
Quarter: 2005Q4

REPORT INFORMATION
  Report Type: 
  Country: None (occurrence: None)
  Receive Date: 20051012
  Receipt Date: 20041203
  Transmission Date: 20060501
  Serious: Yes (Other)
  Sender: FDA-Public Use
  Company Number: GB-GLAXOSMITHKLINE-B0359532A

PATIENT
  Sex: Male

DRUGS (4)
  1. SEROXAT [Suspect]
     Indication: DEPRESSION
     Route: 065
  2. CIPRAMIL [Suspect]
     Dosage: 300MG PER DAY
     Dates: start: 20020205
  3. ALCOHOL [Suspect]
     Dates: start: 20020205
  4. ANTABUSE [Concomitant]
     Route: 065
     Dates: start: 20010101

REACTIONS (6)
  - COMPLETED SUICIDE [None]
  - ILL-DEFINED DISORDER [None]
  - INTENTIONAL SELF-INJURY [None]
  - OVERDOSE [None]
  - PANIC ATTACK [None]
  - SELF-INJURIOUS IDEATION [None]
